FAERS Safety Report 17252527 (Version 3)
Quarter: 2020Q1

REPORT INFORMATION
  Report Type: Report from Study
  Country: US (occurrence: US)
  Receive Date: 20200109
  Receipt Date: 20200205
  Transmission Date: 20200409
  Serious: Yes (Death, Hospitalization)
  Sender: FDA-Public Use
  Company Number: US-EISAI MEDICAL RESEARCH-EC-2019-067159

PATIENT
  Age: 74 Year
  Sex: Male
  Weight: 82 kg

DRUGS (2)
  1. LENVIMA [Suspect]
     Active Substance: LENVATINIB
     Route: 048
     Dates: start: 20200102
  2. LENVIMA [Suspect]
     Active Substance: LENVATINIB
     Indication: HEPATIC CANCER
     Route: 048
     Dates: start: 20191204, end: 20191230

REACTIONS (19)
  - Blood potassium increased [Not Recovered/Not Resolved]
  - Dysphonia [Not Recovered/Not Resolved]
  - Nausea [Not Recovered/Not Resolved]
  - Death [Fatal]
  - Oedema peripheral [Recovering/Resolving]
  - Weight increased [Not Recovered/Not Resolved]
  - Confusional state [Recovering/Resolving]
  - Diarrhoea [Recovering/Resolving]
  - Abdominal distension [Not Recovered/Not Resolved]
  - Abdominal pain [Not Recovered/Not Resolved]
  - Epistaxis [Not Recovered/Not Resolved]
  - Decreased appetite [Not Recovered/Not Resolved]
  - Ammonia increased [Not Recovered/Not Resolved]
  - Dry skin [Not Recovered/Not Resolved]
  - Blood pressure fluctuation [Not Recovered/Not Resolved]
  - Hepatic enzyme abnormal [Not Recovered/Not Resolved]
  - Wound infection [Not Recovered/Not Resolved]
  - Pruritus [Not Recovered/Not Resolved]
  - Asthenia [Not Recovered/Not Resolved]

NARRATIVE: CASE EVENT DATE: 2019
